FAERS Safety Report 19818102 (Version 4)
Quarter: 2021Q4

REPORT INFORMATION
  Report Type: Spontaneous
  Country: US (occurrence: US)
  Receive Date: 20210911
  Receipt Date: 20211201
  Transmission Date: 20220303
  Serious: Yes (Hospitalization)
  Sender: FDA-Public Use
  Company Number: NVSC2021US205347

PATIENT
  Sex: Female

DRUGS (4)
  1. ADAKVEO [Suspect]
     Active Substance: CRIZANLIZUMAB-TMCA
     Indication: Sickle cell disease
     Dosage: UNK, QMO (INTO BLOOD STREAM)
     Route: 042
  2. ADAKVEO [Suspect]
     Active Substance: CRIZANLIZUMAB-TMCA
     Dosage: UNK, QMO
     Route: 042
  3. ADAKVEO [Suspect]
     Active Substance: CRIZANLIZUMAB-TMCA
     Dosage: UNK
     Route: 042
  4. ADAKVEO [Suspect]
     Active Substance: CRIZANLIZUMAB-TMCA
     Route: 042

REACTIONS (11)
  - Infusion related reaction [Unknown]
  - Arthralgia [Unknown]
  - Nausea [Unknown]
  - Haemoglobin decreased [Unknown]
  - Burning sensation [Unknown]
  - Pain in extremity [Unknown]
  - Back pain [Unknown]
  - Herpes zoster [Unknown]
  - Bronchitis [Unknown]
  - Ear infection [Unknown]
  - Drug ineffective [Unknown]
